FAERS Safety Report 10789330 (Version 1)
Quarter: 2015Q1

REPORT INFORMATION
  Report Type: Spontaneous
  Country: US (occurrence: US)
  Receive Date: 20150212
  Receipt Date: 20150212
  Transmission Date: 20150721
  Serious: No
  Sender: FDA-Public Use
  Company Number: US-GLAXOSMITHKLINE-A1090403A

PATIENT

DRUGS (2)
  1. BLOOD PRESSURE MED TABLET [Concomitant]
  2. ADVAIR DISKUS [Suspect]
     Active Substance: FLUTICASONE PROPIONATE\SALMETEROL XINAFOATE
     Indication: ASTHMA
     Dosage: 250/50
     Route: 055
     Dates: start: 20140915

REACTIONS (3)
  - Drug prescribing error [Unknown]
  - Therapeutic response decreased [Unknown]
  - Nocturnal dyspnoea [Not Recovered/Not Resolved]

NARRATIVE: CASE EVENT DATE: 20140915
